FAERS Safety Report 7227924-4 (Version None)
Quarter: 2011Q1

REPORT INFORMATION
  Report Type: 
  Country: None (occurrence: None)
  Receive Date: 20110114
  Receipt Date: 20110106
  Transmission Date: 20110831
  Serious: Yes (Hospitalization)
  Sender: FDA-Public Use
  Company Number: BR-MEDIMMUNE-MEDI-0012176

PATIENT
  Sex: Male
  Weight: 8.84 kg

DRUGS (10)
  1. FLUTICASONE PROPIONATE [Concomitant]
     Indication: ASTHMA
     Route: 055
     Dates: start: 20100801
  2. DOMPERIDONE [Concomitant]
     Route: 048
     Dates: start: 20100301, end: 20110105
  3. MONTELUKAST SODIUM [Concomitant]
     Route: 048
  4. RANITIDINE [Concomitant]
     Route: 048
  5. CEFUROXIME [Concomitant]
     Indication: PNEUMONIA
     Route: 048
     Dates: start: 20101101, end: 20101101
  6. SYNAGIS [Suspect]
  7. GEVITAL [Concomitant]
     Indication: VITAMIN SUPPLEMENTATION
     Route: 048
     Dates: start: 20101208
  8. SYNAGIS [Suspect]
     Indication: BRONCHOPULMONARY DYSPLASIA
     Route: 030
     Dates: start: 20100304, end: 20100713
  9. SYNAGIS [Suspect]
     Route: 030
     Dates: start: 20100812
  10. FERROGLYCINATE CHELATE [Concomitant]
     Route: 048

REACTIONS (8)
  - PNEUMOCYSTIS JIROVECI PNEUMONIA [None]
  - ACUTE RESPIRATORY FAILURE [None]
  - PNEUMONIA ASPIRATION [None]
  - PNEUMONIA [None]
  - VOMITING [None]
  - RESPIRATORY DISORDER [None]
  - ATELECTASIS [None]
  - HYPERSENSITIVITY [None]
